FAERS Safety Report 6412824-X (Version None)
Quarter: 2009Q4

REPORT INFORMATION
  Report Type: 
  Country: None (occurrence: None)
  Receive Date: 20091023
  Receipt Date: 20091021
  Transmission Date: 20100525
  Serious: No
  Sender: FDA-Public Use
  Company Number: US-B.I. PHARMACEUTICALS,INC./RIDGEFIELD-2009-BP-12334BP

PATIENT
  Age: 31 Year
  Sex: Male

DRUGS (1)
  1. ZANTAC 150 [Suspect]
     Indication: DYSPEPSIA
     Dosage: 150 MG
     Route: 048
     Dates: start: 20091001

REACTIONS (4)
  - DYSPHAGIA [None]
  - FAECES DISCOLOURED [None]
  - HAEMATEMESIS [None]
  - MUSCLE SPASMS [None]
